FAERS Safety Report 4806709-X (Version None)
Quarter: 2005Q4

REPORT INFORMATION
  Report Type: 
  Country: None (occurrence: None)
  Receive Date: 20051019
  Receipt Date: 20051004
  Transmission Date: 20060501
  Serious: Yes (Other)
  Sender: FDA-Public Use
  Company Number: US_0510122741

PATIENT
  Age: 1 Day
  Sex: Male

DRUGS (2)
  1. FLUOXETINE HCL [Suspect]
  2. ELTROXIN (LEVOTHYROXINE SODIUM) [Concomitant]

REACTIONS (4)
  - ASSISTED DELIVERY [None]
  - CARDIAC MURMUR [None]
  - DRUG EXPOSURE DURING PREGNANCY [None]
  - ELECTROCARDIOGRAM QT CORRECTED INTERVAL PROLONGED [None]
